FAERS Safety Report 11629079 (Version 2)
Quarter: 2016Q2

REPORT INFORMATION
  Report Type: Spontaneous
  Country: SE (occurrence: SE)
  Receive Date: 20151014
  Receipt Date: 20160629
  Transmission Date: 20160815
  Serious: Yes (Other)
  Sender: FDA-Public Use
  Company Number: SE-PFIZER INC-2015337958

PATIENT
  Age: 83 Year
  Sex: Female

DRUGS (1)
  1. LESTID [Suspect]
     Active Substance: COLESTIPOL
     Route: 048
     Dates: start: 20150923, end: 20150923

REACTIONS (1)
  - Oesophageal obstruction [Recovered/Resolved]

NARRATIVE: CASE EVENT DATE: 20150923
